FAERS Safety Report 16798812 (Version 1)
Quarter: 2019Q3

REPORT INFORMATION
  Report Type: Spontaneous
  Country: US (occurrence: US)
  Receive Date: 20190911
  Receipt Date: 20190911
  Transmission Date: 20191005
  Serious: Yes (Hospitalization)
  Sender: FDA-Public Use
  Company Number: None

PATIENT
  Age: 30 Year
  Sex: Female
  Weight: 122.85 kg

DRUGS (8)
  1. GLIPIZIDE - 5MG TABLET TWICE A DAY [Concomitant]
  2. ZYRTEC - 10MG [Concomitant]
  3. WARFARIN - TWO 5MG TABLETS ONCE A DAY [Concomitant]
  4. TRI-PREVIFEM [Suspect]
     Active Substance: ETHINYL ESTRADIOL\NORGESTIMATE
     Indication: MENSTRUATION IRREGULAR
     Route: 048
     Dates: start: 20190106, end: 20190827
  5. ALBUTEROL NEBULIZER (EVERY 4-6 HOURS AS NEEDED) [Concomitant]
  6. METFORMIN - 500MG TABLET TWIC A DAY [Concomitant]
  7. COMBIVENT INHALER (1 PUFF EVERY 4-6 HOURS AS NEEDED) [Concomitant]
  8. SINGULAR - 10MG [Concomitant]

REACTIONS (2)
  - Pulmonary embolism [None]
  - Pericardial effusion [None]

NARRATIVE: CASE EVENT DATE: 20190828
